FAERS Safety Report 24530478 (Version 1)
Quarter: 2024Q4

REPORT INFORMATION
  Report Type: Spontaneous
  Country: GB (occurrence: GB)
  Receive Date: 20241021
  Receipt Date: 20241021
  Transmission Date: 20250114
  Serious: Yes (Other)
  Sender: MYLAN
  Company Number: GB-MYLANLABS-2024M1094993

PATIENT
  Age: 31 Year
  Sex: Female

DRUGS (10)
  1. APIXABAN [Suspect]
     Active Substance: APIXABAN
     Indication: Deep vein thrombosis
     Dosage: UNK
     Route: 065
  2. APIXABAN [Suspect]
     Active Substance: APIXABAN
     Indication: Pulmonary embolism
  3. ENOXAPARIN [Suspect]
     Active Substance: ENOXAPARIN
     Indication: Deep vein thrombosis
     Dosage: UNK, BID
     Route: 065
  4. ENOXAPARIN [Suspect]
     Active Substance: ENOXAPARIN
     Indication: Pulmonary embolism
  5. ENOXAPARIN [Suspect]
     Active Substance: ENOXAPARIN
     Indication: Sigmoid sinus thrombosis
  6. ENOXAPARIN [Suspect]
     Active Substance: ENOXAPARIN
     Indication: Cerebral infarction
  7. ASPIRIN [Suspect]
     Active Substance: ASPIRIN
     Indication: Deep vein thrombosis
     Dosage: 75 MILLIGRAM, QD
     Route: 065
  8. ASPIRIN [Suspect]
     Active Substance: ASPIRIN
     Indication: Pulmonary embolism
  9. ASPIRIN [Suspect]
     Active Substance: ASPIRIN
     Indication: Sigmoid sinus thrombosis
  10. ASPIRIN [Suspect]
     Active Substance: ASPIRIN
     Indication: Cerebral infarction

REACTIONS (1)
  - Drug ineffective [Unknown]
